FAERS Safety Report 15808359 (Version 2)
Quarter: 2019Q1

REPORT INFORMATION
  Report Type: Report from Study
  Country: CZ (occurrence: CZ)
  Receive Date: 20190110
  Receipt Date: 20190111
  Transmission Date: 20190417
  Serious: Yes (Hospitalization)
  Sender: FDA-Public Use
  Company Number: CZ-PFIZER INC-2018519599

PATIENT
  Age: 68 Year
  Sex: Male
  Weight: 92.8 kg

DRUGS (14)
  1. MILURIT [Concomitant]
     Active Substance: ALLOPURINOL
     Dosage: 300 MG, UNK
     Dates: start: 201512
  2. AXITINIB [Suspect]
     Active Substance: AXITINIB
     Dosage: 5 MG, 2X/DAY (CYCLE 26)
     Route: 048
     Dates: start: 20181114, end: 20181204
  3. IMODIUM [Concomitant]
     Active Substance: LOPERAMIDE HYDROCHLORIDE
     Dosage: 2 MG, UNK
     Dates: start: 20171201
  4. CALTRATE [Concomitant]
     Active Substance: CALCIUM CARBONATE
     Dosage: 600 MG, UNK
     Dates: start: 20170407
  5. FRESUBIN ENERGY FIBRE [Concomitant]
     Dosage: 200 ML, UNK
     Route: 048
     Dates: start: 20170703
  6. AXITINIB [Suspect]
     Active Substance: AXITINIB
     Indication: RENAL CELL CARCINOMA
     Dosage: 5 MG, 2X/DAY
     Route: 048
     Dates: start: 20170523, end: 20181113
  7. DEGAN [Concomitant]
     Active Substance: METOCLOPRAMIDE HYDROCHLORIDE
     Dosage: 10 MG, UNK
     Dates: start: 20170703
  8. AUGMENTIN [Concomitant]
     Active Substance: AMOXICILLIN\CLAVULANATE POTASSIUM
     Dosage: 2 G, UNK
     Dates: start: 20181208, end: 20181210
  9. FRAMYKOIN [BACITRACIN ZINC;NEOMYCIN SULFATE] [Concomitant]
     Dosage: 5.2 MG, UNK
     Dates: start: 20181208, end: 20181225
  10. PEMBROLIZUMAB. [Suspect]
     Active Substance: PEMBROLIZUMAB
     Dosage: 200 MG, EVERY 3 WEEKS (CYCLE 27)
     Route: 042
     Dates: start: 20181220, end: 20181220
  11. ATORIS [Concomitant]
     Active Substance: ATORVASTATIN CALCIUM
     Dosage: 10 MG, UNK
     Dates: start: 20170613
  12. PEMBROLIZUMAB. [Suspect]
     Active Substance: PEMBROLIZUMAB
     Indication: RENAL CELL CARCINOMA
     Dosage: 200 MG, EVERY 3 WEEKS (200 MG (VOLUME OF INFUSION: 108 ML), EVERY THREE WEEKS (Q3W))
     Route: 042
     Dates: start: 20170523, end: 20181024
  13. DENOSUMAB [Concomitant]
     Active Substance: DENOSUMAB
     Dosage: 120 MG, UNK
     Dates: start: 20170407
  14. PEMBROLIZUMAB. [Suspect]
     Active Substance: PEMBROLIZUMAB
     Dosage: 200 MG, EVERY 3 WEEKS (CYCLE 26)
     Route: 042
     Dates: start: 20181114, end: 20181114

REACTIONS (4)
  - Glucocorticoid deficiency [Recovering/Resolving]
  - Dehydration [Recovered/Resolved]
  - Hyponatraemia [Recovering/Resolving]
  - Hypotension [Recovered/Resolved]

NARRATIVE: CASE EVENT DATE: 20181210
